FAERS Safety Report 20780042 (Version 2)
Quarter: 2025Q1

REPORT INFORMATION
  Report Type: Report from Study
  Country: US (occurrence: US)
  Receive Date: 20220503
  Receipt Date: 20250304
  Transmission Date: 20250409
  Serious: Yes (Other)
  Sender: JAZZ
  Company Number: US-GW PHARMA-2022-US-014011

PATIENT
  Age: 17 Year
  Sex: Female
  Weight: 51.9 kg

DRUGS (3)
  1. EPIDIOLEX [Suspect]
     Active Substance: CANNABIDIOL
     Indication: Epilepsy
     Dosage: 500 MILLIGRAM, BID
  2. EPIDIOLEX [Suspect]
     Active Substance: CANNABIDIOL
     Indication: Intellectual disability
     Dosage: 19.34 MILLIGRAM/KILOGRAM/DAY, BID
     Route: 048
  3. KEPPRA [Concomitant]
     Active Substance: LEVETIRACETAM
     Indication: Hypersensitivity

REACTIONS (5)
  - Generalised tonic-clonic seizure [Unknown]
  - COVID-19 [Recovered/Resolved]
  - Dysarthria [Unknown]
  - Confusional state [Unknown]
  - Fatigue [Unknown]

NARRATIVE: CASE EVENT DATE: 20211004
